FAERS Safety Report 11023333 (Version 2)
Quarter: 2015Q2

REPORT INFORMATION
  Report Type: Spontaneous
  Country: US (occurrence: US)
  Receive Date: 20150413
  Receipt Date: 20150505
  Transmission Date: 20150821
  Serious: No
  Sender: FDA-Public Use
  Company Number: US-PFIZER INC-2015120509

PATIENT
  Age: 21 Year
  Sex: Female
  Weight: 88 kg

DRUGS (1)
  1. HYDROCORTISONE. [Suspect]
     Active Substance: HYDROCORTISONE
     Indication: ADRENOGENITAL SYNDROME
     Dosage: 10 MG, UNK

REACTIONS (2)
  - Fibromyalgia [Unknown]
  - Condition aggravated [Unknown]
